FAERS Safety Report 6062643-1 (Version None)
Quarter: 2009Q1

REPORT INFORMATION
  Report Type: 
  Country: None (occurrence: None)
  Receive Date: 20090203
  Receipt Date: 20090122
  Transmission Date: 20090719
  Serious: Yes (Hospitalization)
  Sender: FDA-Public Use
  Company Number: US-WYE-H07831709

PATIENT
  Sex: Female

DRUGS (2)
  1. PRISTIQ [Suspect]
     Dosage: UNKNOWN
     Route: 048
  2. LIPITOR [Suspect]
     Dosage: UNKNOWN
     Route: 048

REACTIONS (1)
  - HEPATIC FAILURE [None]
